FAERS Safety Report 11223677 (Version 1)
Quarter: 2015Q2

REPORT INFORMATION
  Report Type: Spontaneous
  Country: DE (occurrence: DE)
  Receive Date: 20150629
  Receipt Date: 20150629
  Transmission Date: 20150821
  Serious: Yes (Other)
  Sender: FDA-Public Use
  Company Number: DE-ORION CORPORATION ORION PHARMA-TREX2015-0378

PATIENT
  Age: 78 Year
  Sex: Male

DRUGS (1)
  1. METHOTREXATE [Suspect]
     Active Substance: METHOTREXATE
     Dosage: FOR 4 DAYS (40 MG IN TOTAL)
     Route: 048

REACTIONS (8)
  - Inappropriate schedule of drug administration [Unknown]
  - Gastrointestinal haemorrhage [Recovered/Resolved]
  - Accidental overdose [Unknown]
  - Pneumonia [Recovered/Resolved]
  - Mucosal inflammation [Recovered/Resolved]
  - Pancytopenia [Recovered/Resolved]
  - Oesophagitis [Recovered/Resolved]
  - Cystitis haemorrhagic [Recovered/Resolved]
